FAERS Safety Report 8086341 (Version 3)
Quarter: 2012Q4

REPORT INFORMATION
  Report Type: Report from Study
  Country: CA (occurrence: CA)
  Receive Date: 20110811
  Receipt Date: 20121002
  Transmission Date: 20130627
  Serious: Yes (Death, Other)
  Sender: FDA-Public Use
  Company Number: CA-CELGENEUS-028-C5013-11080706

PATIENT
  Age: 78 Year
  Sex: Male
  Weight: 91 kg

DRUGS (16)
  1. CC-5013 [Suspect]
     Indication: MULTIPLE MYELOMA
     Dosage: 25 Milligram
     Route: 048
     Dates: start: 20090728, end: 20101227
  2. DEXAMETHASONE [Suspect]
     Indication: MULTIPLE MYELOMA
     Dosage: 20 Milligram
     Route: 065
     Dates: start: 20090728, end: 20101228
  3. HYDROCHLOROTHIAZIDE [Concomitant]
     Indication: HYPERTENSION
     Dosage: 25 Milligram
     Route: 048
  4. RAMIPRIL [Concomitant]
     Indication: HYPERTENSION
     Dosage: 10 Milligram
     Route: 048
  5. CIMETIDINE [Concomitant]
     Indication: HEARTBURN
     Dosage: 400 Milligram
     Route: 048
  6. AZITHROMYCIN [Concomitant]
     Indication: GOUT
     Dosage: 250 Milligram
     Route: 048
     Dates: start: 20100202
  7. VITAMIN D [Concomitant]
     Indication: BONE DISORDER
     Dosage: 800 IU (International Unit)
     Route: 048
     Dates: start: 20101207
  8. CALCIUM [Concomitant]
     Indication: BONE DISORDER
     Dosage: 1500 Milligram
     Route: 048
     Dates: start: 20101207
  9. CALCIUM [Concomitant]
     Indication: PROPHYLACTIC
     Route: 048
  10. AREDIA [Concomitant]
     Indication: PROPHYLACTIC
     Dosage: 90 Milligram
     Route: 041
     Dates: start: 20110104
  11. AREDIA [Concomitant]
     Indication: BONE DISORDER
     Route: 041
  12. GLICLAZIDE [Concomitant]
     Indication: DIABETES
     Dosage: 30 Milligram
     Route: 048
     Dates: start: 20110515
  13. TYLENOL EXTRA STRENGTH [Concomitant]
     Indication: BACK PAIN
     Dosage: 6 Tablet
     Route: 048
     Dates: start: 20110315
  14. TYLENOL EXTRA STRENGTH [Concomitant]
     Dosage: 6 Tablet
     Route: 048
     Dates: start: 20110315
  15. CODEINE [Concomitant]
     Indication: BACK PAIN
     Dosage: 30 Milligram
     Route: 048
     Dates: start: 20110315
  16. CODEINE [Concomitant]
     Indication: PAIN
     Dosage: 30 Milligram
     Route: 048
     Dates: start: 20110711

REACTIONS (1)
  - Adenocarcinoma of colon [Fatal]
